FAERS Safety Report 8110667-2 (Version None)
Quarter: 2012Q1

REPORT INFORMATION
  Report Type: 
  Country: None (occurrence: None)
  Receive Date: 20120201
  Receipt Date: 20120201
  Transmission Date: 20120608
  Serious: Yes (Hospitalization)
  Sender: FDA-Public Use
  Company Number: None

PATIENT
  Sex: Male
  Weight: 88 kg

DRUGS (6)
  1. RITUXIMAB (MOAB C2B8 ANTI CD20, CHIMERIC) [Suspect]
     Dosage: 770 MG
  2. ETOPOSIDE [Suspect]
     Dosage: 412 MG
  3. DOXORUBICIN HCL [Suspect]
     Dosage: 84 MG
  4. VINCRISTINE SULFATE [Suspect]
     Dosage: 3.28 MG
  5. CYCLOPHOSPHAMIDE [Suspect]
     Dosage: 1545 MG
  6. PREDNISONE [Suspect]
     Dosage: 1200 MG

REACTIONS (2)
  - DIARRHOEA [None]
  - FEBRILE NEUTROPENIA [None]
